FAERS Safety Report 24038938 (Version 1)
Quarter: 2024Q3

REPORT INFORMATION
  Report Type: Spontaneous
  Country: GB (occurrence: GB)
  Receive Date: 20240702
  Receipt Date: 20240702
  Transmission Date: 20241016
  Serious: Yes (Disabling, Other)
  Sender: AUROBINDO
  Company Number: GB-MHRA-MED-202406212011402830-KBZHS

PATIENT
  Age: 43 Year
  Sex: Male
  Weight: 102 kg

DRUGS (2)
  1. DULOXETINE [Interacting]
     Active Substance: DULOXETINE
     Indication: Adverse drug reaction
     Dosage: 30 MILLIGRAM, ONCE A DAY (30MG TWICE A DAY)
     Route: 065
     Dates: start: 20240201, end: 20240219
  2. DIHYDROCODEINE [Interacting]
     Active Substance: DIHYDROCODEINE
     Indication: Adverse drug reaction
     Dosage: UNK
     Route: 065
     Dates: start: 20170608

REACTIONS (3)
  - Vision blurred [Not Recovered/Not Resolved]
  - Myopia [Recovered/Resolved with Sequelae]
  - Drug interaction [Unknown]

NARRATIVE: CASE EVENT DATE: 20240201
